FAERS Safety Report 4293367-9 (Version None)
Quarter: 2004Q1

REPORT INFORMATION
  Report Type: 
  Country: None (occurrence: None)
  Receive Date: 20040126
  Receipt Date: 20031111
  Transmission Date: 20041129
  Serious: No
  Sender: FDA-Public Use
  Company Number: USA031151576

PATIENT
  Age: 61 Year
  Sex: Female
  Weight: 89 kg

DRUGS (5)
  1. FORTEO [Suspect]
     Indication: OSTEOPOROSIS
     Dosage: 20 UG/DAY
     Dates: start: 20031028
  2. ZELNORM (ZELNORM) [Concomitant]
  3. PROGESTIN INJ [Concomitant]
  4. SYNTHROID [Concomitant]
  5. PROTONIX [Concomitant]

REACTIONS (11)
  - ARTHRALGIA [None]
  - ASTHENIA [None]
  - BACK PAIN [None]
  - BURNING SENSATION [None]
  - DEPRESSION [None]
  - FEELING ABNORMAL [None]
  - INJECTION SITE ERYTHEMA [None]
  - INJECTION SITE HAEMORRHAGE [None]
  - INJECTION SITE STINGING [None]
  - MUSCULAR WEAKNESS [None]
  - MYALGIA [None]
